FAERS Safety Report 5967462-X (Version None)
Quarter: 2008Q4

REPORT INFORMATION
  Report Type: 
  Country: None (occurrence: None)
  Receive Date: 20081125
  Receipt Date: 20081114
  Transmission Date: 20090506
  Serious: Yes (Hospitalization, Other)
  Sender: FDA-Public Use
  Company Number: GB-PFIZER INC-2008094984

PATIENT
  Age: 72 Year
  Sex: Female

DRUGS (4)
  1. CYCLOPHOSPHAMIDE [Suspect]
     Route: 042
  2. PREDNISOLONE [Concomitant]
     Dosage: DAILY DOSE:30MG
     Route: 048
  3. PREDNISOLONE [Concomitant]
     Dosage: DAILY DOSE:10MG
     Route: 048
  4. METHYLPREDNISOLONE 16MG TAB [Concomitant]
     Route: 048

REACTIONS (1)
  - CENTRAL NERVOUS SYSTEM LYMPHOMA [None]
